FAERS Safety Report 20041972 (Version 1)
Quarter: 2021Q4

REPORT INFORMATION
  Report Type: Spontaneous
  Country: GB (occurrence: GB)
  Receive Date: 20211108
  Receipt Date: 20211108
  Transmission Date: 20220303
  Serious: No
  Sender: FDA-Public Use
  Company Number: GB-LUPIN PHARMACEUTICALS INC.-2021-21773

PATIENT

DRUGS (1)
  1. LEVETIRACETAM [Suspect]
     Active Substance: LEVETIRACETAM
     Indication: Seizure
     Dosage: 1000 MILLIGRAM, QD-USING WATER FOR INJECTION VIA CONTINUOUS INFUSION THROUGH A SYRINGE DRIVER
     Route: 058

REACTIONS (2)
  - Off label use [Unknown]
  - Intentional product use issue [Unknown]
